FAERS Safety Report 21307719 (Version 6)
Quarter: 2025Q3

REPORT INFORMATION
  Report Type: Spontaneous
  Country: IN (occurrence: IN)
  Receive Date: 20220908
  Receipt Date: 20250708
  Transmission Date: 20251020
  Serious: Yes (Hospitalization, Other)
  Sender: PFIZER
  Company Number: IN-PFIZER INC-2019158132

PATIENT
  Age: 54 Year
  Sex: Male

DRUGS (5)
  1. SUTENT [Suspect]
     Active Substance: SUNITINIB MALATE
     Indication: Metastatic renal cell carcinoma
     Route: 048
     Dates: start: 20190412
  2. SUTENT [Suspect]
     Active Substance: SUNITINIB MALATE
  3. SUTENT [Suspect]
     Active Substance: SUNITINIB MALATE
     Route: 048
  4. SUTENT [Suspect]
     Active Substance: SUNITINIB MALATE
     Dates: end: 202206
  5. SUTENT [Suspect]
     Active Substance: SUNITINIB MALATE
     Dates: start: 202209, end: 2025

REACTIONS (16)
  - Tumour excision [Unknown]
  - Adrenalectomy [Unknown]
  - Blood thyroid stimulating hormone decreased [Unknown]
  - Hypothyroidism [Unknown]
  - Metastatic renal cell carcinoma [Unknown]
  - Malignant neoplasm progression [Unknown]
  - Diarrhoea [Unknown]
  - Bladder dilatation [Unknown]
  - Hydrocele [Unknown]
  - Prostatomegaly [Unknown]
  - Abdominal distension [Unknown]
  - Hypertension [Unknown]
  - Haemoglobin decreased [Unknown]
  - Platelet count decreased [Unknown]
  - Palmar-plantar erythrodysaesthesia syndrome [Unknown]
  - Mouth ulceration [Unknown]

NARRATIVE: CASE EVENT DATE: 20220801
